FAERS Safety Report 15778193 (Version 1)
Quarter: 2018Q4

REPORT INFORMATION
  Report Type: Spontaneous
  Country: US (occurrence: US)
  Receive Date: 20181231
  Receipt Date: 20181231
  Transmission Date: 20190205
  Serious: Yes (Hospitalization, Other)
  Sender: FDA-Public Use
  Company Number: US-GILEAD-2018-0382215

PATIENT

DRUGS (1)
  1. YESCARTA [Suspect]
     Active Substance: AXICABTAGENE CILOLEUCEL
     Indication: PRODUCT USED FOR UNKNOWN INDICATION
     Dosage: UNK
     Route: 042
     Dates: start: 20180905, end: 20180905

REACTIONS (5)
  - Cytokine release syndrome [Unknown]
  - Weight decreased [Unknown]
  - Pyrexia [Unknown]
  - Encephalopathy [Unknown]
  - Hypotension [Unknown]

NARRATIVE: CASE EVENT DATE: 2018
